FAERS Safety Report 7981168-7 (Version None)
Quarter: 2011Q4

REPORT INFORMATION
  Report Type: 
  Country: None (occurrence: None)
  Receive Date: 20111129
  Receipt Date: 20110602
  Transmission Date: 20120403
  Serious: Yes (Other)
  Sender: FDA-Public Use
  Company Number: PHHY2011US48789

PATIENT
  Sex: Female

DRUGS (1)
  1. LAMISIL [Suspect]
     Indication: PARONYCHIA

REACTIONS (3)
  - EATING DISORDER [None]
  - DEPRESSIVE SYMPTOM [None]
  - AGEUSIA [None]
